FAERS Safety Report 4284112-1 (Version None)
Quarter: 2004Q1

REPORT INFORMATION
  Report Type: 
  Country: None (occurrence: None)
  Receive Date: 20040130
  Receipt Date: 20040114
  Transmission Date: 20041129
  Serious: Yes (Hospitalization)
  Sender: FDA-Public Use
  Company Number: 2003IM001287

PATIENT
  Age: 20 Year
  Sex: Female

DRUGS (2)
  1. ADVAFERON (A643_INTERFERON ALFACON-1) [Suspect]
     Indication: HEPATITIS C
     Dosage: 18 MU; QD; SUBCUTANEOUS
     Route: 058
     Dates: start: 20030604, end: 20030623
  2. DICLOFENAC SODIUM [Concomitant]

REACTIONS (3)
  - ALANINE AMINOTRANSFERASE INCREASED [None]
  - LIVER DISORDER [None]
  - PROTHROMBIN TIME ABNORMAL [None]
